FAERS Safety Report 10137124 (Version 1)
Quarter: 2014Q2

REPORT INFORMATION
  Report Type: Spontaneous
  Country: US (occurrence: US)
  Receive Date: 20140429
  Receipt Date: 20140429
  Transmission Date: 20141212
  Serious: No
  Sender: FDA-Public Use
  Company Number: US-ABBVIE-14P-163-1221152-00

PATIENT
  Age: 67 Year
  Sex: Male
  Weight: 84.44 kg

DRUGS (11)
  1. ANDROGEL [Suspect]
     Indication: BLOOD TESTOSTERONE DECREASED
     Dosage: 2 PUMPS
     Route: 061
     Dates: start: 201402
  2. VITAMIN B12 [Concomitant]
     Indication: VITAMIN SUPPLEMENTATION
  3. FOLIC ACID [Concomitant]
     Indication: VITAMIN SUPPLEMENTATION
  4. COD LIVER OIL [Concomitant]
     Indication: VITAMIN SUPPLEMENTATION
  5. CIALIS [Concomitant]
     Indication: ERECTILE DYSFUNCTION
  6. COQ 10 [Concomitant]
     Indication: VITAMIN SUPPLEMENTATION
  7. PROBIOTICS [Concomitant]
     Indication: VITAMIN SUPPLEMENTATION
  8. OMEGA 3 [Concomitant]
     Indication: VITAMIN SUPPLEMENTATION
  9. FACTOR 2 [Concomitant]
     Indication: MUSCLE BUILDING THERAPY
  10. WHEY DRIED [Concomitant]
     Indication: SUPPLEMENTATION THERAPY
  11. VITAMIN C [Concomitant]
     Indication: VITAMIN SUPPLEMENTATION

REACTIONS (1)
  - Faeces soft [Not Recovered/Not Resolved]
